FAERS Safety Report 15585733 (Version 1)
Quarter: 2018Q4

REPORT INFORMATION
  Report Type: Report from Study
  Country: US (occurrence: US)
  Receive Date: 20181105
  Receipt Date: 20181105
  Transmission Date: 20190205
  Serious: Yes (Hospitalization)
  Sender: FDA-Public Use
  Company Number: US-UCBSA-2018049301

PATIENT
  Age: 34 Month
  Sex: Female

DRUGS (8)
  1. PHENOBARBITAL. [Concomitant]
     Active Substance: PHENOBARBITAL
     Indication: SEIZURE
  2. ONFI [Concomitant]
     Active Substance: CLOBAZAM
     Indication: SEIZURE
     Dosage: UNK
  3. VIMPAT [Suspect]
     Active Substance: LACOSAMIDE
     Indication: SEIZURE
     Dosage: UNK
  4. TOPAMAX [Concomitant]
     Active Substance: TOPIRAMATE
     Indication: SEIZURE
  5. DILANTIN [Concomitant]
     Active Substance: PHENYTOIN
     Indication: SEIZURE
  6. DEPAKOTE [Concomitant]
     Active Substance: DIVALPROEX SODIUM
     Indication: SEIZURE
  7. LEVETIRACETAM. [Suspect]
     Active Substance: LEVETIRACETAM
     Indication: SEIZURE
     Dosage: UNK
  8. STIRIPENTOL [Concomitant]
     Active Substance: STIRIPENTOL
     Indication: SEIZURE

REACTIONS (1)
  - Status epilepticus [Unknown]
